FAERS Safety Report 12503514 (Version 1)
Quarter: 2016Q2

REPORT INFORMATION
  Report Type: Spontaneous
  Country: US (occurrence: None)
  Receive Date: 20160627
  Receipt Date: 20160627
  Transmission Date: 20160815
  Serious: No
  Sender: FDA-Public Use
  Company Number: None

PATIENT
  Age: 21 Year
  Sex: Female
  Weight: 81.65 kg

DRUGS (1)
  1. NEXPLANON [Suspect]
     Active Substance: ETONOGESTREL
     Dates: start: 20160121

REACTIONS (4)
  - Self injurious behaviour [None]
  - Suicidal ideation [None]
  - Depression [None]
  - Emotional disorder [None]

NARRATIVE: CASE EVENT DATE: 20160620
